FAERS Safety Report 9099764 (Version 2)
Quarter: 2013Q1

REPORT INFORMATION
  Report Type: Spontaneous
  Country: US (occurrence: US)
  Receive Date: 20130214
  Receipt Date: 20130307
  Transmission Date: 20140127
  Serious: Yes (Death)
  Sender: FDA-Public Use
  Company Number: US-ELI_LILLY_AND_COMPANY-US201302002153

PATIENT
  Sex: 0

DRUGS (5)
  1. PEMETREXED [Suspect]
     Dosage: 500 MG/M2, EVERY 3 WEEKS
     Route: 042
  2. SUNITINIB [Concomitant]
     Dosage: 37.5 MG, OTHER
     Route: 048
  3. CISPLATIN [Concomitant]
     Dosage: 75 MG/M2, EVERY 3 WEEKS
     Route: 042
  4. VITAMIN B12 [Concomitant]
  5. FOLIC ACID [Concomitant]

REACTIONS (2)
  - Multi-organ failure [Fatal]
  - Malignant neoplasm progression [Fatal]
